FAERS Safety Report 9230067 (Version 1)
Quarter: 2013Q2

REPORT INFORMATION
  Report Type: Spontaneous
  Country: DK (occurrence: DK)
  Receive Date: 20130415
  Receipt Date: 20130422
  Transmission Date: 20140414
  Serious: Yes (Hospitalization, Other)
  Sender: FDA-Public Use
  Company Number: DK-JNJFOC-20130401217

PATIENT
  Age: 26 Year
  Sex: Female

DRUGS (5)
  1. INFLIXIMAB, RECOMBINANT [Suspect]
     Indication: COLITIS ULCERATIVE
     Route: 042
  2. 5-AMINOSALICYLIC ACID [Suspect]
     Indication: COLITIS ULCERATIVE
     Route: 065
  3. 5-AMINOSALICYLIC ACID [Suspect]
     Indication: COLITIS ULCERATIVE
     Route: 065
  4. METHYLPREDNISOLONE [Suspect]
     Indication: COLITIS ULCERATIVE
     Route: 042
  5. METHYLPREDNISOLONE [Suspect]
     Indication: COLITIS ULCERATIVE
     Route: 042

REACTIONS (3)
  - Premature delivery [Recovered/Resolved]
  - Exposure during pregnancy [Recovered/Resolved]
  - Serum sickness-like reaction [Unknown]
